FAERS Safety Report 4537415-7 (Version None)
Quarter: 2004Q4

REPORT INFORMATION
  Report Type: 
  Country: None (occurrence: None)
  Receive Date: 20041216
  Receipt Date: 20031216
  Transmission Date: 20050328
  Serious: Yes (Other)
  Sender: FDA-Public Use
  Company Number: HQWYE687417DEC03

PATIENT
  Age: 29 Year
  Sex: Female
  Weight: 68.1 kg

DRUGS (1)
  1. EFFEXOR XR [Suspect]
     Indication: DEPRESSION
     Dosage: 75 MG 1X PER 1 DAY, ORAL
     Route: 048
     Dates: start: 20030201

REACTIONS (10)
  - AGITATION [None]
  - CONFUSIONAL STATE [None]
  - COORDINATION ABNORMAL [None]
  - DIZZINESS [None]
  - DRUG EXPOSURE DURING PREGNANCY [None]
  - DRUG EXPOSURE VIA BREAST MILK [None]
  - DRUG WITHDRAWAL SYNDROME [None]
  - HYPERTENSION [None]
  - MALAISE [None]
  - TREMOR [None]
